FAERS Safety Report 8257775-3 (Version None)
Quarter: 2012Q2

REPORT INFORMATION
  Report Type: 
  Country: None (occurrence: None)
  Receive Date: 20120404
  Receipt Date: 20120322
  Transmission Date: 20120825
  Serious: No
  Sender: FDA-Public Use
  Company Number: US-BIOGENIDEC-2011BI047877

PATIENT
  Age: 43 Year
  Sex: Female

DRUGS (1)
  1. TYSABRI [Suspect]
     Indication: MULTIPLE SCLEROSIS
     Route: 042
     Dates: start: 20111118, end: 20111216

REACTIONS (10)
  - CHEST DISCOMFORT [None]
  - SWELLING [None]
  - URTICARIA [None]
  - EAR PRURITUS [None]
  - NONSPECIFIC REACTION [None]
  - DYSPNOEA [None]
  - INFUSION RELATED REACTION [None]
  - EYELID OEDEMA [None]
  - HYPERSENSITIVITY [None]
  - ERYTHEMA [None]
